FAERS Safety Report 4881714-6 (Version None)
Quarter: 2006Q1

REPORT INFORMATION
  Report Type: 
  Country: None (occurrence: None)
  Receive Date: 20060116
  Receipt Date: 20060106
  Transmission Date: 20060701
  Serious: Yes (Life-Threatening, Hospitalization)
  Sender: FDA-Public Use
  Company Number: FR-ROCHE-431357

PATIENT
  Age: 84 Year
  Sex: Female

DRUGS (13)
  1. RIVOTRIL [Suspect]
     Indication: DRUG USE FOR UNKNOWN INDICATION
     Route: 048
     Dates: end: 20041018
  2. DEROXAT [Suspect]
     Indication: DRUG USE FOR UNKNOWN INDICATION
     Route: 048
     Dates: end: 20041018
  3. EFFERALGAN CODEINE [Suspect]
     Indication: DRUG USE FOR UNKNOWN INDICATION
     Route: 048
     Dates: end: 20041018
  4. ATARAX [Suspect]
     Indication: DRUG USE FOR UNKNOWN INDICATION
     Route: 048
     Dates: end: 20041018
  5. PREVISCAN [Concomitant]
     Route: 048
  6. ZYLORIC [Concomitant]
     Route: 048
  7. LASILIX [Concomitant]
  8. HYPERIUM [Concomitant]
     Dates: end: 20041018
  9. ZESTRIL [Concomitant]
     Dates: end: 20041018
  10. EUPRESSYL [Concomitant]
  11. ALDACTONE [Concomitant]
     Dates: end: 20041018
  12. CORDARONE [Concomitant]
  13. KARDEGIC [Concomitant]

REACTIONS (6)
  - COMA [None]
  - CONSCIOUSNESS FLUCTUATING [None]
  - LEUKOCYTOSIS [None]
  - OEDEMA PERIPHERAL [None]
  - RALES [None]
  - RESPIRATORY ACIDOSIS [None]
